FAERS Safety Report 11194613 (Version 2)
Quarter: 2015Q2

REPORT INFORMATION
  Report Type: Spontaneous
  Country: ZA (occurrence: ZA)
  Receive Date: 20150617
  Receipt Date: 20150624
  Transmission Date: 20150821
  Serious: Yes (Death)
  Sender: FDA-Public Use
  Company Number: ZA-SYMPLMED PHARMACEUTICALS-2015SYM00144

PATIENT
  Age: 31 Year
  Sex: Female

DRUGS (5)
  1. SYMBICORD [Concomitant]
     Active Substance: BUDESONIDE\FORMOTEROL
     Indication: ASTHMA
     Dosage: UNK
     Dates: end: 20140413
  2. PURESIS [Concomitant]
     Active Substance: FUROSEMIDE
     Indication: FLUID RETENTION
     Dosage: 200 MG, QD
     Dates: end: 20140409
  3. ACEON [Suspect]
     Active Substance: PERINDOPRIL ERBUMINE
     Indication: HYPERTENSION
     Dosage: UNK
     Route: 048
     Dates: end: 20140413
  4. CIPLAVASC [Concomitant]
     Indication: ANGINA PECTORIS
     Dosage: UNK
     Dates: end: 20140413
  5. SIMVASTATIN. [Concomitant]
     Active Substance: SIMVASTATIN
     Indication: HYPERLIPIDAEMIA
     Dosage: UNK
     Dates: end: 20140413

REACTIONS (1)
  - Renal failure [Fatal]

NARRATIVE: CASE EVENT DATE: 20140413
